FAERS Safety Report 6175841-3 (Version None)
Quarter: 2009Q2

REPORT INFORMATION
  Report Type: 
  Country: None (occurrence: None)
  Receive Date: 20090501
  Receipt Date: 20090428
  Transmission Date: 20091009
  Serious: Yes (Other)
  Sender: FDA-Public Use
  Company Number: BR-ROXANE LABORATORIES, INC.-2009-RO-00416RO

PATIENT
  Age: 33 Year
  Sex: Male

DRUGS (2)
  1. CITALOPRAM HYDROBROMIDE [Suspect]
     Indication: DEPRESSION
     Dosage: 20MG
  2. CITALOPRAM HYDROBROMIDE [Suspect]
     Dosage: 60MG

REACTIONS (3)
  - DISINHIBITION [None]
  - DRUG INEFFECTIVE [None]
  - HYPOMANIA [None]
